FAERS Safety Report 4988467-1 (Version None)
Quarter: 2006Q2

REPORT INFORMATION
  Report Type: 
  Country: None (occurrence: None)
  Receive Date: 20060502
  Receipt Date: 20060418
  Transmission Date: 20061013
  Serious: Yes (Death)
  Sender: FDA-Public Use
  Company Number: US-AMGEN-US176660

PATIENT
  Sex: Male
  Weight: 94.4 kg

DRUGS (8)
  1. ARANESP [Suspect]
     Indication: DRUG USE FOR UNKNOWN INDICATION
     Dates: start: 20060401, end: 20060401
  2. ASPIRIN [Concomitant]
  3. FUROSEMIDE [Concomitant]
     Dates: start: 20051124
  4. COREG [Concomitant]
  5. PLAVIX [Concomitant]
  6. NITROGLYCERIN [Concomitant]
  7. ALEVE [Concomitant]
  8. PROTONIX [Concomitant]

REACTIONS (5)
  - BACK PAIN [None]
  - CARDIAC DISORDER [None]
  - MYALGIA [None]
  - PAIN IN EXTREMITY [None]
  - TROPONIN INCREASED [None]
